FAERS Safety Report 9381402 (Version 5)
Quarter: 2014Q2

REPORT INFORMATION
  Report Type: Report from Study
  Country: NL (occurrence: NL)
  Receive Date: 20130703
  Receipt Date: 20140604
  Transmission Date: 20141212
  Serious: Yes (Hospitalization, Other)
  Sender: FDA-Public Use
  Company Number: PHHY2013NL067467

PATIENT
  Age: 66 Year
  Sex: Female
  Weight: 71 kg

DRUGS (3)
  1. SANDOSTATIN LAR [Suspect]
     Indication: NEUROENDOCRINE TUMOUR
     Dosage: 30 MG/2ML, ONCE EVERY 3 WEEKS
     Route: 030
     Dates: start: 201007
  2. SPIRONOLACTONE [Concomitant]
     Dosage: 25 MG, QD (ONCE DAILY)
  3. ACENOCOUMAROL [Concomitant]
     Dosage: UNK UKN, UNK

REACTIONS (3)
  - Heart valve incompetence [Not Recovered/Not Resolved]
  - Cardiac failure [Recovering/Resolving]
  - Oedema peripheral [Not Recovered/Not Resolved]
